FAERS Safety Report 5368128-X (Version None)
Quarter: 2007Q2

REPORT INFORMATION
  Report Type: 
  Country: None (occurrence: None)
  Receive Date: 20070619
  Receipt Date: 20070606
  Transmission Date: 20071010
  Serious: Yes (Death, Hospitalization, Other)
  Sender: FDA-Public Use
  Company Number: 2007-00747

PATIENT
  Age: 63 Year
  Sex: Male

DRUGS (30)
  1. VELCADE [Suspect]
     Indication: MULTIPLE MYELOMA
     Dosage: 2.00 MG; 1.50 MG
     Dates: start: 20070220, end: 20070302
  2. VELCADE [Suspect]
     Indication: MULTIPLE MYELOMA
     Dosage: 2.00 MG; 1.50 MG
     Dates: start: 20070417, end: 20070522
  3. DEXAMETHASONE 0.5MG TAB [Concomitant]
  4. MUCOSTA (REBAMIPIDE) [Concomitant]
  5. AMPHOTERICAN B (AMPHOTERICIN B) [Concomitant]
  6. PARIET (REBEPRAZOLE SODIUM) [Concomitant]
  7. ZOLPIDEM TARTRATE [Concomitant]
  8. SULFAMETHOXAZOLE + TRIMETHOPRIM [Concomitant]
  9. ITRACONAZOLE [Concomitant]
  10. NEUPOGEN [Concomitant]
  11. ALLOPURINOL [Concomitant]
  12. MEYOON (SODIUM BICARBONATE) [Concomitant]
  13. TORSEMIDE [Concomitant]
  14. XYLOCAINE [Concomitant]
  15. NOZLEN (SODIUM GUALENATE) [Concomitant]
  16. RED BLOOD CELLS [Concomitant]
  17. PLATELETS [Concomitant]
  18. GAMMAGARD [Concomitant]
  19. TIENAM (IMIPENEM, CILASTATIN) [Concomitant]
  20. KAYTWO (MENATETRENONE) [Concomitant]
  21. LASIX [Concomitant]
  22. ORGARAN [Concomitant]
  23. PIPERACILLIN SODIUM AND TAZOBACTAM SODIUM [Concomitant]
  24. CIPROXAN (CIPROFLOXACIN HYDROCHLORIDE) [Concomitant]
  25. PLASMA [Concomitant]
  26. MORPHINE [Concomitant]
  27. MEXITIL [Concomitant]
  28. VANCOMYCIN [Concomitant]
  29. ACYCLOVIR [Concomitant]
  30. PROMAC      /JPN/ (POLAPREZINC) [Concomitant]

REACTIONS (19)
  - ABDOMINAL PAIN UPPER [None]
  - ANAEMIA [None]
  - BLOOD ALKALINE PHOSPHATASE INCREASED [None]
  - CARDIAC FAILURE [None]
  - CARDIAC HYPERTROPHY [None]
  - CHOLELITHIASIS [None]
  - DIARRHOEA [None]
  - DISSEMINATED INTRAVASCULAR COAGULATION [None]
  - DYSGEUSIA [None]
  - FUNGAL INFECTION [None]
  - HERPES ZOSTER [None]
  - HYPOALBUMINAEMIA [None]
  - INFECTION [None]
  - NEUROPATHY PERIPHERAL [None]
  - PLATELET COUNT DECREASED [None]
  - PLEURAL EFFUSION [None]
  - PNEUMONIA [None]
  - PSEUDOMEMBRANOUS COLITIS [None]
  - STOMATITIS [None]
